FAERS Safety Report 4806064-5 (Version None)
Quarter: 2005Q4

REPORT INFORMATION
  Report Type: 
  Country: None (occurrence: None)
  Receive Date: 20051019
  Receipt Date: 20051011
  Transmission Date: 20060501
  Serious: Yes (Hospitalization)
  Sender: FDA-Public Use
  Company Number: TAP2005Q01821

PATIENT
  Age: 26 Year
  Sex: Female
  Weight: 89.3586 kg

DRUGS (3)
  1. LUPRON DEPOT-4 [Suspect]
     Indication: POLYCYSTIC OVARIES
     Dosage: 30 MG, 1 IN 4 M, INTRAMUSCULAR
     Route: 030
     Dates: start: 20050501
  2. SPIRONOLACTONE [Concomitant]
  3. YASMIN BIRTH CONTROL (DROSPIRENONE  W/ ETHINYLESTRADIOL) [Concomitant]

REACTIONS (6)
  - DIFFICULTY IN WALKING [None]
  - INJECTION SITE PAIN [None]
  - INJECTION SITE SWELLING [None]
  - MYOSITIS [None]
  - OEDEMA PERIPHERAL [None]
  - PAIN IN EXTREMITY [None]
